FAERS Safety Report 7824857-7 (Version None)
Quarter: 2011Q4

REPORT INFORMATION
  Report Type: 
  Country: None (occurrence: None)
  Receive Date: 20111019
  Receipt Date: 20110215
  Transmission Date: 20120403
  Serious: Yes (Hospitalization)
  Sender: FDA-Public Use
  Company Number: US-BRISTOL-MYERS SQUIBB COMPANY-15551534

PATIENT
  Age: 73 Year
  Sex: Female

DRUGS (2)
  1. METOPROLOL TARTRATE [Concomitant]
  2. AVALIDE [Suspect]

REACTIONS (4)
  - MALAISE [None]
  - HYPOAESTHESIA [None]
  - SENSORY DISTURBANCE [None]
  - HYPERTENSION [None]
